FAERS Safety Report 24436983 (Version 1)
Quarter: 2024Q4

REPORT INFORMATION
  Report Type: Spontaneous
  Country: MY (occurrence: MY)
  Receive Date: 20241015
  Receipt Date: 20241015
  Transmission Date: 20250115
  Serious: Yes (Death, Other)
  Sender: DR REDDYS
  Company Number: MY-RDY-LIT/MYS/24/0015144

PATIENT
  Age: 3 Decade
  Sex: Male

DRUGS (7)
  1. DOXORUBICIN [Suspect]
     Active Substance: DOXORUBICIN
     Indication: Precursor T-lymphoblastic lymphoma/leukaemia refractory
  2. CYCLOPHOSPHAMIDE [Suspect]
     Active Substance: CYCLOPHOSPHAMIDE
     Indication: Precursor T-lymphoblastic lymphoma/leukaemia refractory
  3. VINCRISTINE [Suspect]
     Active Substance: VINCRISTINE
     Indication: Precursor T-lymphoblastic lymphoma/leukaemia refractory
  4. DASATINIB [Suspect]
     Active Substance: DASATINIB
     Indication: Precursor T-lymphoblastic lymphoma/leukaemia refractory
  5. IFOSFAMIDE [Suspect]
     Active Substance: IFOSFAMIDE
     Indication: Precursor T-lymphoblastic lymphoma/leukaemia refractory
  6. CARBOPLATIN [Suspect]
     Active Substance: CARBOPLATIN
     Indication: Precursor T-lymphoblastic lymphoma/leukaemia refractory
  7. ETOPOSIDE [Suspect]
     Active Substance: ETOPOSIDE
     Indication: Precursor T-lymphoblastic lymphoma/leukaemia refractory

REACTIONS (5)
  - Thrombocytopenia [Fatal]
  - Pneumonia [Fatal]
  - Eosinophilic myocarditis [Fatal]
  - Malignant neoplasm progression [Fatal]
  - Drug ineffective for unapproved indication [Fatal]
